FAERS Safety Report 17503226 (Version 1)
Quarter: 2020Q1

REPORT INFORMATION
  Report Type: Spontaneous
  Country: US (occurrence: US)
  Receive Date: 20200305
  Receipt Date: 20200305
  Transmission Date: 20200409
  Serious: No
  Sender: FDA-Public Use
  Company Number: US-ROCHE-2301960

PATIENT
  Sex: Female
  Weight: 67.19 kg

DRUGS (6)
  1. ITRACONAZOLE. [Concomitant]
     Active Substance: ITRACONAZOLE
     Dosage: ONGOING: UNKNOWN
     Route: 065
     Dates: start: 20180820
  2. VITAMIN D3 [Concomitant]
     Active Substance: CHOLECALCIFEROL
     Dosage: ONGOING: YES
     Route: 048
     Dates: start: 20180820
  3. ARNUITY ELLIPTA [Concomitant]
     Active Substance: FLUTICASONE FUROATE
     Dosage: ONGOING: UNKNOWN
     Route: 055
     Dates: start: 20180820
  4. ALBUTEROL SULFATE. [Concomitant]
     Active Substance: ALBUTEROL SULFATE
     Dosage: ONGOING: UNKNOWN
     Route: 048
     Dates: start: 20180820
  5. XOLAIR [Suspect]
     Active Substance: OMALIZUMAB
     Indication: ASTHMA
     Dosage: ONGOING: YES
     Route: 058
     Dates: start: 20180822
  6. GABAPENTIN. [Concomitant]
     Active Substance: GABAPENTIN
     Dosage: ONGOING: UNKNOWN
     Route: 048
     Dates: start: 20180820

REACTIONS (1)
  - Fatigue [Unknown]
